FAERS Safety Report 14439582 (Version 1)
Quarter: 2018Q1

REPORT INFORMATION
  Report Type: Spontaneous
  Country: JP (occurrence: JP)
  Receive Date: 20180125
  Receipt Date: 20180125
  Transmission Date: 20180509
  Serious: Yes (Death)
  Sender: FDA-Public Use
  Company Number: JP-SHIONOGI, INC-2017001467

PATIENT
  Sex: Male

DRUGS (4)
  1. LECICARBON                         /05510501/ [Concomitant]
     Indication: CONSTIPATION
     Dosage: UNK
     Route: 054
     Dates: start: 20171121, end: 20171128
  2. SYMPROIC [Suspect]
     Active Substance: NALDEMEDINE
     Indication: CONSTIPATION
     Dosage: 0.2 MG, QD
     Route: 048
     Dates: start: 20171128, end: 20171215
  3. MS CONTIN [Concomitant]
     Active Substance: MORPHINE SULFATE
     Indication: SMALL CELL CARCINOMA
     Dosage: UNK
     Route: 048
     Dates: start: 20171108, end: 20171215
  4. POSTERISAN                         /00028601/ [Concomitant]
     Indication: ANAL FISSURE
     Dosage: UNK
     Route: 065
     Dates: start: 20171204

REACTIONS (2)
  - Anal fissure [Recovered/Resolved]
  - Small cell carcinoma [Fatal]

NARRATIVE: CASE EVENT DATE: 20171204
